FAERS Safety Report 11194885 (Version 2)
Quarter: 2015Q3

REPORT INFORMATION
  Report Type: Report from Study
  Country: JP (occurrence: JP)
  Receive Date: 20150617
  Receipt Date: 20150902
  Transmission Date: 20151125
  Serious: Yes (Death)
  Sender: FDA-Public Use
  Company Number: JP-ROCHE-1594846

PATIENT
  Age: 80 Year
  Sex: Male

DRUGS (7)
  1. METHOXY POLYETHYLENE GLYCOL-EPOETIN BETA [Suspect]
     Active Substance: METHOXY POLYETHYLENE GLYCOL-EPOETIN BETA
     Indication: NEPHROGENIC ANAEMIA
     Route: 058
     Dates: start: 20130117
  2. GATIFLO [Concomitant]
     Active Substance: GATIFLOXACIN
     Route: 047
     Dates: start: 20130628
  3. PREDNISOLONE. [Concomitant]
     Active Substance: PREDNISOLONE
     Route: 048
  4. RINDERON V [Concomitant]
     Active Substance: BETAMETHASONE VALERATE
     Route: 047
     Dates: start: 20130628
  5. NIPOLAZIN [Concomitant]
     Route: 048
  6. RINDERON V [Concomitant]
     Active Substance: BETAMETHASONE VALERATE
     Route: 045
     Dates: start: 20130628
  7. HUMALOG [Concomitant]
     Active Substance: INSULIN LISPRO
     Dosage: 6 AND 5 AND 0 UNITS OF EVENING OF DAYTIME OF MORNING
     Route: 058

REACTIONS (1)
  - Asphyxia [Fatal]

NARRATIVE: CASE EVENT DATE: 20131127
